FAERS Safety Report 8530464-3 (Version None)
Quarter: 2012Q3

REPORT INFORMATION
  Report Type: 
  Country: None (occurrence: None)
  Receive Date: 20120723
  Receipt Date: 20120719
  Transmission Date: 20120928
  Serious: Yes (Hospitalization, Other)
  Sender: FDA-Public Use
  Company Number: US-PFIZER INC-2010060552

PATIENT
  Sex: Female
  Weight: 56.689 kg

DRUGS (10)
  1. ZOLOFT [Suspect]
     Indication: AGGRESSION
  2. ACCUPRIL [Suspect]
     Indication: HYPERTENSION
     Dosage: 10 MG, 1X/DAY
     Route: 048
     Dates: start: 20100201
  3. ACCUPRIL [Suspect]
     Dosage: 10 MG, 1X/DAY
     Route: 048
  4. ZOLOFT [Suspect]
     Indication: ABNORMAL BEHAVIOUR
  5. ZOLOFT [Suspect]
     Indication: ANXIETY
     Dosage: 25 MG, 1X/DAY
     Route: 048
  6. ZOLOFT [Suspect]
     Indication: DEPRESSION
     Dosage: 25 MG, 2X/DAY
     Route: 048
  7. ALPRAZOLAM [Concomitant]
     Dosage: UNK
  8. ZOLOFT [Suspect]
     Indication: HEADACHE
     Dosage: 50 MG, 1X/DAY
     Route: 048
  9. ACCUPRIL [Suspect]
     Dosage: 20 MG, 1X/DAY
     Route: 048
  10. ZOLOFT [Suspect]
     Indication: STRESS
     Dosage: 100 MG, 1X/DAY
     Route: 048

REACTIONS (8)
  - RHEUMATOID ARTHRITIS [None]
  - HYPERTENSION [None]
  - STRESS [None]
  - HEADACHE [None]
  - NEPHROLITHIASIS [None]
  - PAIN [None]
  - DEPRESSION [None]
  - ANXIETY [None]
